FAERS Safety Report 24151177 (Version 1)
Quarter: 2024Q3

REPORT INFORMATION
  Report Type: Spontaneous
  Country: US (occurrence: None)
  Receive Date: 20240729
  Receipt Date: 20240729
  Transmission Date: 20241016
  Serious: Yes (Hospitalization)
  Sender: Public
  Company Number: None

PATIENT
  Age: 51 Year
  Sex: Female

DRUGS (1)
  1. RETACRIT [Suspect]
     Active Substance: EPOETIN ALFA-EPBX
     Indication: Renal disorder
     Dosage: OTHER FREQUENCY : 3 TIMES PER WEEK;?
     Route: 058
     Dates: start: 20240701

REACTIONS (1)
  - Asthma [None]

NARRATIVE: CASE EVENT DATE: 20240724
